FAERS Safety Report 11334669 (Version 1)
Quarter: 2015Q3

REPORT INFORMATION
  Report Type: Spontaneous
  Country: US (occurrence: US)
  Receive Date: 20150804
  Receipt Date: 20150804
  Transmission Date: 20151125
  Serious: No
  Sender: FDA-Public Use
  Company Number: US-TEVA-558714USA

PATIENT
  Sex: Female
  Weight: 84 kg

DRUGS (1)
  1. VENLAFAXINE [Suspect]
     Active Substance: VENLAFAXINE HYDROCHLORIDE
     Dosage: 375 MILLIGRAM DAILY;
     Route: 065
     Dates: start: 2013

REACTIONS (3)
  - Tremor [Unknown]
  - Feeling abnormal [Unknown]
  - Palpitations [Unknown]
